FAERS Safety Report 18140534 (Version 2)
Quarter: 2020Q3

REPORT INFORMATION
  Report Type: Spontaneous
  Country: AR (occurrence: AR)
  Receive Date: 20200812
  Receipt Date: 20200827
  Transmission Date: 20201103
  Serious: Yes (Hospitalization, Other)
  Sender: FDA-Public Use
  Company Number: AR-PFIZER INC-2020309194

PATIENT
  Age: 82 Year
  Sex: Female

DRUGS (2)
  1. XELJANZ [Suspect]
     Active Substance: TOFACITINIB CITRATE
     Indication: RHEUMATOID ARTHRITIS
     Dosage: 5 MG, 2X/DAY
     Route: 048
     Dates: start: 20170412
  2. XELJANZ [Suspect]
     Active Substance: TOFACITINIB CITRATE
     Dosage: 5 MG, 1X/DAY
     Route: 048

REACTIONS (10)
  - Malaise [Unknown]
  - Dyspnoea [Unknown]
  - Bronchial disorder [Unknown]
  - Visual impairment [Unknown]
  - Arrhythmia [Unknown]
  - Gait disturbance [Unknown]
  - Fatigue [Unknown]
  - Blood pressure abnormal [Unknown]
  - Atrial fibrillation [Unknown]
  - Pruritus [Unknown]
